FAERS Safety Report 15056514 (Version 1)
Quarter: 2018Q2

REPORT INFORMATION
  Report Type: Spontaneous
  Country: US (occurrence: US)
  Receive Date: 20180623
  Receipt Date: 20180623
  Transmission Date: 20180711
  Serious: No
  Sender: FDA-Public Use
  Company Number: US-JNJFOC-20180612373

PATIENT
  Age: 42 Year
  Sex: Female

DRUGS (1)
  1. RISPERDAL [Suspect]
     Active Substance: RISPERIDONE
     Indication: BIPOLAR DISORDER
     Route: 048
     Dates: start: 200101, end: 2002

REACTIONS (5)
  - Anhedonia [Unknown]
  - Lactation disorder [Recovered/Resolved]
  - Weight increased [Not Recovered/Not Resolved]
  - Abnormal loss of weight [Unknown]
  - Akathisia [Unknown]
